FAERS Safety Report 9363969 (Version 2)
Quarter: 2013Q3

REPORT INFORMATION
  Report Type: Spontaneous
  Country: DE (occurrence: None)
  Receive Date: 20130618
  Receipt Date: 20130816
  Transmission Date: 20140515
  Serious: Yes (Other)
  Sender: FDA-Public Use
  Company Number: TPA2013A05135

PATIENT
  Age: 69 Year
  Sex: Female

DRUGS (1)
  1. ADENURIC [Suspect]
     Indication: GOUT
     Route: 048
     Dates: start: 20130201, end: 20130401

REACTIONS (2)
  - Rash generalised [None]
  - Acarodermatitis [None]
